FAERS Safety Report 4974207-9 (Version None)
Quarter: 2006Q2

REPORT INFORMATION
  Report Type: 
  Country: None (occurrence: None)
  Receive Date: 20060417
  Receipt Date: 20051004
  Transmission Date: 20061013
  Serious: Yes (Hospitalization, Disabling)
  Sender: FDA-Public Use
  Company Number: US-MERCK-0510USA03495

PATIENT
  Age: 34 Year
  Sex: Female
  Weight: 78 kg

DRUGS (8)
  1. VIOXX [Suspect]
     Indication: BACK PAIN
     Route: 048
     Dates: start: 20010702
  2. VIOXX [Suspect]
     Route: 048
     Dates: end: 20030501
  3. VIOXX [Suspect]
     Indication: ARTHRALGIA
     Route: 048
     Dates: start: 19990701
  4. VIOXX [Suspect]
     Route: 048
     Dates: start: 20010702
  5. VIOXX [Suspect]
     Route: 048
     Dates: end: 20030501
  6. TYLENOL (CAPLET) [Concomitant]
     Route: 065
  7. IBUPROFEN [Concomitant]
     Route: 065
  8. VIOXX [Suspect]
     Route: 048
     Dates: start: 19990701

REACTIONS (9)
  - ARTHROPATHY [None]
  - CARDIAC FAILURE CONGESTIVE [None]
  - CARDIOMYOPATHY [None]
  - HEADACHE [None]
  - HYPERTENSION [None]
  - MYOFASCIAL PAIN SYNDROME [None]
  - NECK INJURY [None]
  - ROAD TRAFFIC ACCIDENT [None]
  - SUBARACHNOID HAEMORRHAGE [None]
